FAERS Safety Report 7178017-6 (Version None)
Quarter: 2010Q4

REPORT INFORMATION
  Report Type: 
  Country: None (occurrence: None)
  Receive Date: 20101220
  Receipt Date: 20101208
  Transmission Date: 20110411
  Serious: Yes (Hospitalization, Other)
  Sender: FDA-Public Use
  Company Number: US-CELGENEUS-163-21880-09120585

PATIENT
  Age: 69 Year
  Sex: Female
  Weight: 55.91 kg

DRUGS (11)
  1. REVLIMID [Suspect]
     Route: 048
     Dates: start: 20091130, end: 20091208
  2. FLAVOPIRIDOL [Suspect]
     Dosage: 30MG/M2, THEN 50MG/M2
     Dates: start: 20091012
  3. FLAVOPIRIDOL [Suspect]
     Dosage: 30MG/M2, THEN 30MG/M2
     Route: 051
     Dates: start: 20091130, end: 20091209
  4. HYDRATION [Concomitant]
     Route: 051
     Dates: start: 20091201
  5. ALLOPURINOL [Concomitant]
     Route: 065
  6. DEXAMETHASONE [Concomitant]
     Route: 065
  7. DEXAMETHASONE [Concomitant]
     Route: 065
  8. CALCIUM ACETATE [Concomitant]
     Route: 065
  9. TAMIFLU [Concomitant]
     Route: 065
     Dates: start: 20091211
  10. AZITHROMYCIN [Concomitant]
     Route: 065
     Dates: start: 20091211
  11. ROCEPHIN [Concomitant]
     Route: 065
     Dates: start: 20091211

REACTIONS (7)
  - ALANINE AMINOTRANSFERASE [None]
  - ASPARTATE AMINOTRANSFERASE [None]
  - BLOOD ALKALINE PHOSPHATASE INCREASED [None]
  - BLOOD LACTATE DEHYDROGENASE INCREASED [None]
  - FEBRILE NEUTROPENIA [None]
  - HYPERBILIRUBINAEMIA [None]
  - TUMOUR LYSIS SYNDROME [None]
